FAERS Safety Report 15094213 (Version 5)
Quarter: 2019Q1

REPORT INFORMATION
  Report Type: Report from Study
  Country: US (occurrence: US)
  Receive Date: 20180630
  Receipt Date: 20190124
  Transmission Date: 20190417
  Serious: Yes (Hospitalization, Other)
  Sender: FDA-Public Use
  Company Number: PHHY2017US164930

PATIENT
  Age: 19 Year
  Sex: Male
  Weight: 51.6 kg

DRUGS (37)
  1. RIVAROXABAN [Concomitant]
     Active Substance: RIVAROXABAN
     Indication: THROMBOSIS
     Dosage: 15 MG BID FOR 21 DAYS, 20 MG QD
     Route: 048
     Dates: start: 20170924
  2. ONDANSETRON [Concomitant]
     Active Substance: ONDANSETRON
     Indication: NAUSEA
     Dosage: 8 MG, PRN
     Route: 048
     Dates: start: 20180429, end: 20180504
  3. FENTANYL. [Concomitant]
     Active Substance: FENTANYL
     Indication: PAIN
     Dosage: 25 UG, (2X)
     Route: 042
     Dates: start: 20180425, end: 20180425
  4. TOBI PODHALER [Suspect]
     Active Substance: TOBRAMYCIN
     Indication: PSEUDOMONAS INFECTION
     Dosage: 4 DF (300 MG), BID
     Route: 055
     Dates: start: 20130726
  5. LOVENOX [Concomitant]
     Active Substance: ENOXAPARIN SODIUM
     Indication: THROMBOSIS
     Dosage: 55 MG, Q12H
     Route: 058
     Dates: start: 20170914, end: 20170921
  6. TOBI PODHALER [Suspect]
     Active Substance: TOBRAMYCIN
     Dosage: 28 MG, BID
     Route: 055
     Dates: start: 20170901, end: 20180422
  7. TOBI PODHALER [Suspect]
     Active Substance: TOBRAMYCIN
     Dosage: 112 MG, BID
     Route: 055
     Dates: start: 20130726, end: 20180910
  8. ALBUTEROL. [Concomitant]
     Active Substance: ALBUTEROL
     Indication: CYSTIC FIBROSIS LUNG
     Dosage: 2 DF (PUFFS), QID
     Route: 055
     Dates: start: 20150929
  9. CETRIZINE [Concomitant]
     Active Substance: CETIRIZINE HYDROCHLORIDE
     Indication: RHINITIS ALLERGIC
     Dosage: 10 MG, QD
     Route: 048
     Dates: start: 20090701
  10. NEXIUM [Concomitant]
     Active Substance: ESOMEPRAZOLE MAGNESIUM
     Indication: COLITIS
     Dosage: 40 MG, QD
     Route: 048
     Dates: start: 20150804
  11. GLUCAGON. [Concomitant]
     Active Substance: GLUCAGON
     Indication: CYSTIC FIBROSIS RELATED DIABETES
     Dosage: 1 MG, PRN
     Route: 065
     Dates: start: 20111007
  12. NORMAL SALINE [Concomitant]
     Active Substance: SODIUM CHLORIDE
     Indication: CYSTIC FIBROSIS LUNG
     Dosage: 5 ML, BID
     Route: 055
     Dates: start: 20140407
  13. OXYGEN. [Concomitant]
     Active Substance: OXYGEN
     Indication: CYSTIC FIBROSIS LUNG
     Dosage: QHS
     Route: 055
     Dates: start: 20150318
  14. OXYMETAZOLINE [Concomitant]
     Active Substance: OXYMETAZOLINE
     Indication: NASAL DISCOMFORT
     Dosage: 1 SPRAY
     Route: 045
     Dates: start: 20180501, end: 20180501
  15. ENOXAPARIN [Concomitant]
     Active Substance: ENOXAPARIN
     Indication: THROMBOSIS
     Dosage: 40 MG, QD
     Route: 058
     Dates: start: 20180425, end: 20180516
  16. DIPHENHYDRAMINE. [Concomitant]
     Active Substance: DIPHENHYDRAMINE
     Indication: HYPERSENSITIVITY
     Dosage: 25 MG, PRN
     Route: 048
     Dates: start: 20180503, end: 20180511
  17. LACTOBACILLUS ACIDOPHILUS [Concomitant]
     Active Substance: LACTOBACILLUS ACIDOPHILUS
     Indication: PROBIOTIC THERAPY
     Dosage: 4 DF, QID
     Route: 048
     Dates: start: 20170924
  18. IBUPROFEN. [Concomitant]
     Active Substance: IBUPROFEN
     Dosage: 600 MG, PRN
     Route: 048
     Dates: start: 20180426, end: 20180505
  19. HUMALOG [Concomitant]
     Active Substance: INSULIN LISPRO
     Indication: CYSTIC FIBROSIS RELATED DIABETES
     Dosage: 2 ML, PRN
     Route: 058
     Dates: start: 20161008
  20. DEKA [Concomitant]
     Indication: NUTRITIONAL SUPPLEMENTATION
     Dosage: 2 DF, QD
     Route: 048
     Dates: start: 20170419
  21. CREON [Concomitant]
     Active Substance: PANCRELIPASE AMYLASE\PANCRELIPASE LIPASE\PANCRELIPASE PROTEASE
     Indication: PANCREATIC FAILURE
     Dosage: QD (5 CAP/MEALS, 4 CAP/SNACKS)
     Route: 048
     Dates: start: 20110204
  22. CARAFATE [Concomitant]
     Active Substance: SUCRALFATE
     Indication: COLITIS
     Dosage: 3 G, QD (BEFORE MEALS)
     Route: 065
     Dates: start: 20161216
  23. VORICONAZOLE. [Concomitant]
     Active Substance: VORICONAZOLE
     Dosage: 200 MG, PRN
     Route: 048
     Dates: start: 20180511, end: 20180617
  24. PULMOZYME [Concomitant]
     Active Substance: DORNASE ALFA
     Indication: CYSTIC FIBROSIS LUNG
     Dosage: 2.5 MG, QD
     Route: 055
     Dates: start: 20020524
  25. URSODIOL. [Concomitant]
     Active Substance: URSODIOL
     Indication: TRANSAMINASES INCREASED
     Dosage: 300 MG, BID
     Route: 048
     Dates: start: 20100414
  26. LACTOBACILLUS BULGARICUS [Concomitant]
     Indication: PROBIOTIC THERAPY
     Dosage: 4 DF, QID
     Route: 048
     Dates: start: 20170924
  27. IBUPROFEN. [Concomitant]
     Active Substance: IBUPROFEN
     Indication: PAIN
     Dosage: PRN (400-600 MG)
     Route: 048
     Dates: start: 20170906, end: 20170917
  28. MEGESTROL [Concomitant]
     Active Substance: MEGESTROL
     Indication: DECREASED APPETITE
     Dosage: 400 MG, QD
     Route: 048
     Dates: start: 20180515
  29. MIDAZOLAM [Concomitant]
     Active Substance: MIDAZOLAM HYDROCHLORIDE
     Indication: SEDATION
     Dosage: 0.5 MG, 2X
     Route: 042
     Dates: start: 20180425, end: 20180425
  30. VORICONAZOLE. [Concomitant]
     Active Substance: VORICONAZOLE
     Indication: FUNGAL INFECTION
     Dosage: 400 MG, PRN
     Route: 048
     Dates: start: 20180510, end: 20180511
  31. BACTRIM [Concomitant]
     Active Substance: SULFAMETHOXAZOLE\TRIMETHOPRIM
     Indication: BACTERIAL INFECTION
     Dosage: 1 DF, TID
     Route: 048
     Dates: start: 20180517, end: 20180617
  32. ACETAMINOPHEN. [Concomitant]
     Active Substance: ACETAMINOPHEN
     Dosage: 650 MG, PRN
     Route: 048
     Dates: start: 20180425, end: 20180504
  33. CHOLECALCIFEROL [Concomitant]
     Active Substance: CHOLECALCIFEROL
     Indication: VITAMIN D DEFICIENCY
     Dosage: 1 DF, QD
     Route: 048
     Dates: start: 20150929
  34. NEXIUM [Concomitant]
     Active Substance: ESOMEPRAZOLE MAGNESIUM
     Dosage: 20 MG, BID
     Route: 048
     Dates: start: 20170622, end: 201710
  35. FLONASE [Concomitant]
     Active Substance: FLUTICASONE PROPIONATE
     Indication: PNEUMONITIS
     Dosage: 50 UG, QD (2 SPRAY)
     Route: 045
     Dates: start: 20100414
  36. ACETAMINOPHEN. [Concomitant]
     Active Substance: ACETAMINOPHEN
     Indication: PAIN
     Dosage: 650 MG, PRN
     Route: 048
     Dates: start: 20170905, end: 20170921
  37. ERGOCALCIFEROL. [Concomitant]
     Active Substance: ERGOCALCIFEROL
     Indication: VITAMIN D DEFICIENCY
     Dosage: 50000 U, 1X
     Route: 048
     Dates: start: 20180425, end: 20180425

REACTIONS (22)
  - Infective pulmonary exacerbation of cystic fibrosis [Recovered/Resolved]
  - Blood alkaline phosphatase increased [Recovering/Resolving]
  - Blood sodium decreased [Unknown]
  - Chest pain [Unknown]
  - Aspergillus infection [Recovered/Resolved]
  - Pulmonary congestion [Unknown]
  - Stenotrophomonas infection [Recovered/Resolved]
  - Hypoglycaemia [Recovering/Resolving]
  - Blood potassium increased [Unknown]
  - Obstructive airways disorder [Unknown]
  - Productive cough [Unknown]
  - Forced expiratory volume decreased [Unknown]
  - Staphylococcal infection [Recovered/Resolved]
  - Mycobacterium abscessus infection [Recovered/Resolved]
  - Globulins increased [Unknown]
  - Glycosylated haemoglobin increased [Unknown]
  - Cough [Unknown]
  - Infective pulmonary exacerbation of cystic fibrosis [Unknown]
  - Forced expiratory flow decreased [Unknown]
  - Infective pulmonary exacerbation of cystic fibrosis [Recovering/Resolving]
  - Hyperglycaemia [Recovering/Resolving]
  - Blood glucose increased [Unknown]

NARRATIVE: CASE EVENT DATE: 20170830
